FAERS Safety Report 25370338 (Version 1)
Quarter: 2025Q2

REPORT INFORMATION
  Report Type: Spontaneous
  Country: US (occurrence: US)
  Receive Date: 20250528
  Receipt Date: 20250528
  Transmission Date: 20250717
  Serious: No
  Sender: SANOFI AVENTIS
  Company Number: US-SA-2025SA151231

PATIENT
  Sex: Male
  Weight: 95.45 kg

DRUGS (8)
  1. DUPIXENT [Suspect]
     Active Substance: DUPILUMAB
     Indication: Dermatitis
     Dosage: 300 MG, QOW
     Route: 058
  2. SERTRALINE HYDROCHLORIDE [Concomitant]
     Active Substance: SERTRALINE HYDROCHLORIDE
  3. RIVASTIGMINE [Concomitant]
     Active Substance: RIVASTIGMINE
  4. MEMANTINE [Concomitant]
     Active Substance: MEMANTINE
  5. FINASTERIDE [Concomitant]
     Active Substance: FINASTERIDE
  6. OMEPRAZOLE [Concomitant]
     Active Substance: OMEPRAZOLE
  7. METOPROLOL SUCCINATE [Concomitant]
     Active Substance: METOPROLOL SUCCINATE
  8. VALSARTAN [Concomitant]
     Active Substance: VALSARTAN

REACTIONS (2)
  - Hordeolum [Unknown]
  - Product use in unapproved indication [Unknown]
